FAERS Safety Report 8785763 (Version 2)
Quarter: 2012Q4

REPORT INFORMATION
  Report Type: 
  Country: US (occurrence: US)
  Receive Date: 20120914
  Receipt Date: 20121120
  Transmission Date: 20130627
  Serious: Yes (Death, Hospitalization)
  Sender: FDA-Public Use
  Company Number: US-GLAXOSMITHKLINE-A0993128A

PATIENT
  Age: 76 Year
  Sex: Male

DRUGS (1)
  1. COREG [Suspect]
     Indication: PRODUCT USED FOR UNKNOWN INDICATION
     Dosage: 6.25MG Unknown
     Route: 065
     Dates: start: 20061013, end: 20120829

REACTIONS (1)
  - Death [Fatal]
